FAERS Safety Report 8384331-9 (Version None)
Quarter: 2012Q2

REPORT INFORMATION
  Report Type: 
  Country: None (occurrence: None)
  Receive Date: 20120524
  Receipt Date: 20120514
  Transmission Date: 20120825
  Serious: Yes (Hospitalization, Other)
  Sender: FDA-Public Use
  Company Number: US-ELI_LILLY_AND_COMPANY-US201204003751

PATIENT
  Sex: Female
  Weight: 54 kg

DRUGS (37)
  1. HYDROCODONE BITARTRATE + ACETAMINOPHEN [Concomitant]
     Dosage: UNK, PRN
  2. CALCIUM [Concomitant]
  3. FORTEO [Suspect]
     Dosage: 20 UG, QD
     Route: 058
     Dates: end: 20111114
  4. GLUCOPHAGE [Concomitant]
     Dosage: 500 MG, BID
     Route: 048
     Dates: start: 20120117
  5. KEPPRA [Concomitant]
     Dosage: 1000 MG, BID
     Route: 048
     Dates: start: 20120306
  6. NEURONTIN [Concomitant]
     Dosage: 300 MG, TID
     Route: 048
     Dates: start: 20120508
  7. TOPIRAMATE [Concomitant]
     Dosage: 50 MG, BID
  8. DESONIDE [Concomitant]
  9. MULTI-VITAMINS [Concomitant]
  10. LIDEX [Concomitant]
     Dosage: 120 MG, BID
  11. AMCINONIDE [Concomitant]
     Dosage: UNK, BID
     Route: 061
     Dates: start: 20120507
  12. EPIPEN [Concomitant]
     Indication: ANAPHYLACTIC REACTION
     Dosage: 0.3 MG, PRN
     Dates: start: 20120131
  13. LEVETIRACETAM [Concomitant]
     Dosage: 1500 MG, EACH MORNING
  14. LOPERAMIDE [Concomitant]
     Dosage: 2 MG, UNK
  15. NITROSTAT [Concomitant]
     Dosage: 0.4 MG, PRN
     Route: 060
     Dates: start: 20110621
  16. SINGULAIR [Concomitant]
     Dosage: 10 MG, EACH EVENING
     Route: 048
     Dates: start: 20120117
  17. KEPPRA [Concomitant]
     Dosage: 500 MG, EACH MORNING
     Dates: start: 20120306
  18. LEVETIRACETAM [Concomitant]
     Dosage: 1000 MG, EACH EVENING
  19. HYDROXYZINE HCL [Concomitant]
     Dosage: 25 MG, TID
     Dates: start: 20120507
  20. OMEPRAZOLE [Concomitant]
     Dosage: 20 MG, QD
     Route: 048
  21. METFORMIN HCL [Concomitant]
     Dosage: 500 MG, BID
  22. CALCIUM +VIT D [Concomitant]
     Dosage: 2000 MG, QD
  23. ERGOCALCIFEROL [Concomitant]
     Dosage: 50000 IU, MONTHLY (1/M)
     Route: 048
     Dates: start: 20111213
  24. FORTEO [Suspect]
     Dosage: 20 UG, QD
     Route: 058
     Dates: start: 20120103
  25. MUPIROCIN [Concomitant]
     Dosage: UNK, TID
     Route: 061
     Dates: start: 20120201
  26. LEXAPRO [Concomitant]
     Dosage: 20 MG, QD
     Route: 048
     Dates: start: 20120103
  27. GABAPENTIN [Concomitant]
     Dosage: BID
  28. HYDROXYZINE [Concomitant]
     Dosage: 10 MG, UNK
  29. FORTEO [Suspect]
     Indication: OSTEOPOROSIS
     Dosage: 20 UG, QD
     Route: 058
     Dates: start: 20110528
  30. TRIAMCINOLONE [Concomitant]
     Dosage: UNK, BID
     Route: 061
     Dates: start: 20120103
  31. TOPIRAMATE [Concomitant]
     Dosage: 100 MG, BID
  32. LORAZEPAM [Concomitant]
     Dosage: 0.25 MG, TID
     Route: 048
     Dates: start: 20120103
  33. VITAMIN D [Concomitant]
     Dosage: 1 MG, MONTHLY (1/M)
  34. DOXYCYCLINE HYCLATE [Concomitant]
     Dosage: 100 MG, UNK
  35. DOXEPIN [Concomitant]
     Dosage: 10 MG, UNK
  36. ALDACTONE [Concomitant]
     Dosage: 25 MG, QD
     Route: 048
     Dates: start: 20120103
  37. TOPAMAX [Concomitant]
     Dosage: 300 MG, BID
     Route: 048
     Dates: start: 20120306

REACTIONS (15)
  - POLYMEDICATION [None]
  - PAIN [None]
  - CONVULSION [None]
  - HYPOPHAGIA [None]
  - MENTAL STATUS CHANGES [None]
  - VOMITING [None]
  - RASH [None]
  - NAUSEA [None]
  - ASTHENIA [None]
  - BLOOD GLUCOSE DECREASED [None]
  - OEDEMA PERIPHERAL [None]
  - INFLUENZA [None]
  - COMPLEX REGIONAL PAIN SYNDROME [None]
  - DIARRHOEA [None]
  - WEIGHT DECREASED [None]
